FAERS Safety Report 9513058 (Version 1)
Quarter: 2013Q3

REPORT INFORMATION
  Report Type: Spontaneous
  Country: US (occurrence: US)
  Receive Date: 20130910
  Receipt Date: 20130910
  Transmission Date: 20140515
  Serious: No
  Sender: FDA-Public Use
  Company Number: US-PFIZER INC-2013257086

PATIENT
  Age: 86 Year
  Sex: Male
  Weight: 51.7 kg

DRUGS (1)
  1. CELEBREX [Suspect]
     Indication: ARTHRITIS
     Dosage: 400 MG, 2X/DAY
     Route: 048
     Dates: start: 2005

REACTIONS (1)
  - Drug ineffective [Unknown]
